FAERS Safety Report 4613209-9 (Version None)
Quarter: 2005Q1

REPORT INFORMATION
  Report Type: 
  Country: None (occurrence: None)
  Receive Date: 20050315
  Receipt Date: 20050302
  Transmission Date: 20050727
  Serious: Yes (Hospitalization)
  Sender: FDA-Public Use
  Company Number: 2005000129

PATIENT
  Age: 62 Year
  Sex: Male
  Weight: 73 kg

DRUGS (1)
  1. IRINOTECAN HCL [Suspect]
     Indication: RECTAL CANCER
     Dosage: 114 MG, INTRAVENOUS
     Route: 042
     Dates: start: 20030325, end: 20041227

REACTIONS (7)
  - ANTI-PLATELET ANTIBODY POSITIVE [None]
  - CHILLS [None]
  - DRUG INTOLERANCE [None]
  - HAEMATURIA [None]
  - IDIOPATHIC THROMBOCYTOPENIC PURPURA [None]
  - LEUKOCYTOSIS [None]
  - URINARY TRACT NEOPLASM [None]
